FAERS Safety Report 10971891 (Version 2)
Quarter: 2015Q2

REPORT INFORMATION
  Report Type: Spontaneous
  Country: AU (occurrence: AU)
  Receive Date: 20150331
  Receipt Date: 20150410
  Transmission Date: 20150821
  Serious: Yes (Hospitalization)
  Sender: FDA-Public Use
  Company Number: AU-009507513-1503AUS012124

PATIENT

DRUGS (2)
  1. SIMVASTATIN. [Suspect]
     Active Substance: SIMVASTATIN
     Route: 048
  2. CEFACLOR. [Suspect]
     Active Substance: CEFACLOR

REACTIONS (1)
  - Drug-induced liver injury [Unknown]
